FAERS Safety Report 10587545 (Version 3)
Quarter: 2014Q4

REPORT INFORMATION
  Report Type: Report from Study
  Country: PL (occurrence: PL)
  Receive Date: 20141117
  Receipt Date: 20141216
  Transmission Date: 20150529
  Serious: Yes (Other)
  Sender: FDA-Public Use
  Company Number: PL-ROCHE-1462674

PATIENT
  Age: 63 Year
  Sex: Female
  Weight: 73 kg

DRUGS (6)
  1. AVASTIN [Suspect]
     Active Substance: BEVACIZUMAB
     Indication: COLORECTAL CANCER
     Dosage: THREE FIRST DOSES OF 510 MG/CYCLE WITH XELOX REGIMEN; TOTAL 5 ADMINISTRATIONS OF BEVACIZUMAB.
     Route: 042
     Dates: start: 201108, end: 201202
  2. OXALIPLATIN. [Suspect]
     Active Substance: OXALIPLATIN
     Indication: COLORECTAL CANCER
     Route: 042
     Dates: start: 201107, end: 201202
  3. FOLINIC ACID [Concomitant]
     Active Substance: LEUCOVORIN
     Indication: COLORECTAL CANCER
  4. AVASTIN [Suspect]
     Active Substance: BEVACIZUMAB
     Dosage: TWO SUBSEQUENT DOSES OF 340 MG/CYCLE WITH FOLFOX 4; TOTAL 5 ADMINISTRATIONS OF BEVACIZUMAB.
     Route: 042
  5. XELODA [Suspect]
     Active Substance: CAPECITABINE
     Indication: COLORECTAL CANCER
     Dosage: ADMINISTERED IN DAYS 1-14
     Route: 048
     Dates: start: 201107, end: 201202
  6. FLUOROURACIL. [Concomitant]
     Active Substance: FLUOROURACIL
     Indication: COLORECTAL CANCER

REACTIONS (2)
  - Neutropenia [Recovered/Resolved]
  - Disease progression [Unknown]

NARRATIVE: CASE EVENT DATE: 20120725
